FAERS Safety Report 7969794-2 (Version None)
Quarter: 2011Q4

REPORT INFORMATION
  Report Type: 
  Country: None (occurrence: None)
  Receive Date: 20111122
  Receipt Date: 20110825
  Transmission Date: 20120403
  Serious: No
  Sender: FDA-Public Use
  Company Number: PHEH2011US01732

PATIENT
  Age: 38 Year
  Sex: Female

DRUGS (3)
  1. PROVIGIL [Concomitant]
  2. GILENYA [Suspect]
     Indication: MULTIPLE SCLEROSIS
     Dosage: 0.5MG, QD, ORAL
     Route: 048
     Dates: start: 20110812
  3. EFFEXOR [Concomitant]

REACTIONS (1)
  - FATIGUE [None]
